FAERS Safety Report 7603133-1 (Version None)
Quarter: 2011Q3

REPORT INFORMATION
  Report Type: 
  Country: None (occurrence: None)
  Receive Date: 20110711
  Receipt Date: 20110711
  Transmission Date: 20111222
  Serious: No
  Sender: FDA-Public Use
  Company Number: None

PATIENT
  Age: 40 Year
  Sex: Female
  Weight: 99.7913 kg

DRUGS (1)
  1. JANUVIA [Suspect]

REACTIONS (3)
  - BACK PAIN [None]
  - OEDEMATOUS PANCREATITIS [None]
  - OEDEMA PERIPHERAL [None]
